FAERS Safety Report 6856636-1 (Version None)
Quarter: 2010Q3

REPORT INFORMATION
  Report Type: 
  Country: None (occurrence: None)
  Receive Date: 20100716
  Receipt Date: 20100716
  Transmission Date: 20110219
  Serious: Yes (Hospitalization, Other)
  Sender: FDA-Public Use
  Company Number: None

PATIENT
  Age: 53 Year
  Sex: Female
  Weight: 51 kg

DRUGS (2)
  1. CARBAMAZEPINE [Suspect]
  2. NIMESULIDA [Concomitant]

REACTIONS (5)
  - CONVULSION [None]
  - FALL [None]
  - FEELING COLD [None]
  - INFLAMMATION [None]
  - NAUSEA [None]
